FAERS Safety Report 8364102-X (Version None)
Quarter: 2012Q2

REPORT INFORMATION
  Report Type: 
  Country: None (occurrence: None)
  Receive Date: 20120516
  Receipt Date: 20120510
  Transmission Date: 20120825
  Serious: Yes (Hospitalization, Other)
  Sender: FDA-Public Use
  Company Number: US-PFIZER INC-2011304359

PATIENT
  Sex: Female

DRUGS (5)
  1. CHANTIX [Suspect]
     Indication: SMOKING CESSATION THERAPY
     Dosage: STARTER, MAINTENANCE PACK
     Dates: start: 20090701, end: 20090901
  2. ZOLOFT [Concomitant]
     Indication: ANXIETY
  3. ATIVAN [Concomitant]
     Indication: ANXIETY
     Dosage: UNK
     Dates: start: 20050101, end: 20090101
  4. ZOLOFT [Concomitant]
     Indication: POST-TRAUMATIC STRESS DISORDER
  5. ZOLOFT [Concomitant]
     Indication: DEPRESSION
     Dosage: UNK
     Dates: start: 20040101

REACTIONS (13)
  - PSYCHOTIC DISORDER [None]
  - HALLUCINATION, VISUAL [None]
  - ANXIETY [None]
  - LOSS OF CONSCIOUSNESS [None]
  - INTENTIONAL SELF-INJURY [None]
  - BIPOLAR DISORDER [None]
  - MENTAL DISORDER [None]
  - EMOTIONAL DISTRESS [None]
  - HALLUCINATION, AUDITORY [None]
  - DEPRESSION [None]
  - DELUSION [None]
  - MOOD SWINGS [None]
  - AGGRESSION [None]
